FAERS Safety Report 17014991 (Version 3)
Quarter: 2020Q2

REPORT INFORMATION
  Report Type: Spontaneous
  Country: FR (occurrence: FR)
  Receive Date: 20191111
  Receipt Date: 20200429
  Transmission Date: 20200713
  Serious: Yes (Death, Hospitalization, Other)
  Sender: FDA-Public Use
  Company Number: NVSC2019FR028666

PATIENT
  Age: 38 Year
  Sex: Female

DRUGS (1)
  1. BETAMETHASONE. [Suspect]
     Active Substance: BETAMETHASONE
     Indication: PRURITUS
     Dosage: 600 G, QMO (20 TUBES PER MONTH OR 7.2 KG/YEAR)
     Route: 061

REACTIONS (13)
  - Multiple organ dysfunction syndrome [Fatal]
  - Condition aggravated [Fatal]
  - Wound necrosis [Fatal]
  - Fibula fracture [Fatal]
  - Product use in unapproved indication [Fatal]
  - Osteoporosis [Fatal]
  - Skin burning sensation [Fatal]
  - Fracture [Unknown]
  - Skin atrophy [Fatal]
  - Cushing^s syndrome [Fatal]
  - Septic shock [Fatal]
  - Adrenal insufficiency [Unknown]
  - Intertrigo [Unknown]
